FAERS Safety Report 8346996-7 (Version None)
Quarter: 2012Q2

REPORT INFORMATION
  Report Type: 
  Country: None (occurrence: None)
  Receive Date: 20120509
  Receipt Date: 20120507
  Transmission Date: 20120825
  Serious: No
  Sender: FDA-Public Use
  Company Number: US-PFIZER INC-2012111349

PATIENT
  Sex: Female
  Weight: 76 kg

DRUGS (2)
  1. CHANTIX [Suspect]
     Indication: SMOKING CESSATION THERAPY
     Dosage: 0.5 MG, 1X/DAY
     Route: 048
     Dates: start: 20050701, end: 20050901
  2. PLAVIX [Concomitant]
     Indication: CARDIOVASCULAR DISORDER
     Dosage: UNK

REACTIONS (1)
  - WEIGHT INCREASED [None]
